FAERS Safety Report 18498390 (Version 1)
Quarter: 2020Q4

REPORT INFORMATION
  Report Type: Spontaneous
  Country: FR (occurrence: FR)
  Receive Date: 20201113
  Receipt Date: 20201113
  Transmission Date: 20210114
  Serious: Yes (Death, Hospitalization)
  Sender: FDA-Public Use
  Company Number: FR-SUN PHARMACEUTICAL INDUSTRIES LTD-2020RR-267435

PATIENT
  Age: 49 Year
  Sex: Male
  Weight: 76 kg

DRUGS (6)
  1. ETOPOSIDE. [Suspect]
     Active Substance: ETOPOSIDE
     Indication: TESTIS CANCER
     Dosage: CYCLICAL
     Route: 042
     Dates: start: 20200901, end: 20200905
  2. BLEOMYCINE [Suspect]
     Active Substance: BLEOMYCIN SULFATE
     Indication: TESTIS CANCER
     Dosage: CYCLICAL
     Route: 042
     Dates: start: 20200901, end: 20200915
  3. PACLITAXEL. [Suspect]
     Active Substance: PACLITAXEL
     Indication: TESTIS CANCER
     Dosage: CYCLICAL
     Route: 042
     Dates: start: 20200901, end: 20200901
  4. CISPLATINE [Suspect]
     Active Substance: CISPLATIN
     Indication: TESTIS CANCER
     Dosage: 198 MILLIGRAM, DAILY
     Route: 042
     Dates: start: 20200923, end: 20200923
  5. CISPLATINE [Suspect]
     Active Substance: CISPLATIN
     Dosage: CYCLICAL
     Route: 042
     Dates: start: 20200901, end: 20200905
  6. OXALIPLATIN. [Suspect]
     Active Substance: OXALIPLATIN
     Indication: TESTIS CANCER
     Dosage: CYCLICAL
     Route: 042
     Dates: start: 20200910, end: 20200910

REACTIONS (3)
  - Lung disorder [Fatal]
  - Acute respiratory distress syndrome [Fatal]
  - Respiratory failure [Fatal]

NARRATIVE: CASE EVENT DATE: 20201005
